FAERS Safety Report 10560259 (Version 1)
Quarter: 2014Q4

REPORT INFORMATION
  Report Type: Spontaneous
  Country: US (occurrence: US)
  Receive Date: 20141103
  Receipt Date: 20141103
  Transmission Date: 20150529
  Serious: No
  Sender: FDA-Public Use
  Company Number: US-BRISTOL-MYERS SQUIBB COMPANY-21406921

PATIENT
  Age: 57 Year
  Sex: Male
  Weight: 109.8 kg

DRUGS (1)
  1. METFORMIN HCL XR [Suspect]
     Active Substance: METFORMIN HYDROCHLORIDE
     Dosage: SLOWED RELEASE

REACTIONS (3)
  - Abdominal pain [Unknown]
  - Diarrhoea [Unknown]
  - Drug intolerance [Unknown]
